FAERS Safety Report 7997841-0 (Version None)
Quarter: 2011Q4

REPORT INFORMATION
  Report Type: 
  Country: None (occurrence: None)
  Receive Date: 20111221
  Receipt Date: 20111208
  Transmission Date: 20120403
  Serious: Yes (Hospitalization)
  Sender: FDA-Public Use
  Company Number: PHFR2011IE007068

PATIENT
  Sex: Female
  Weight: 83.8 kg

DRUGS (2)
  1. CLOZARIL [Suspect]
     Dosage: 200 MG, UNK
     Route: 048
  2. CLOZARIL [Suspect]
     Dosage: 100 MG, UNK
     Route: 048
     Dates: start: 20110725

REACTIONS (3)
  - HYDRONEPHROSIS [None]
  - MENTAL IMPAIRMENT [None]
  - RENAL IMPAIRMENT [None]
